FAERS Safety Report 6298262-1 (Version None)
Quarter: 2009Q3

REPORT INFORMATION
  Report Type: 
  Country: None (occurrence: None)
  Receive Date: 20090805
  Receipt Date: 20090729
  Transmission Date: 20100115
  Serious: Yes (Other)
  Sender: FDA-Public Use
  Company Number: US-BAYER-200911990BCC

PATIENT
  Sex: Female

DRUGS (2)
  1. ASPIRIN [Suspect]
     Indication: ARTHRITIS
     Dosage: CONSUMER HAVE BEEN USING ASPIRIN FOR YEARS
     Route: 048
  2. ASPIRIN [Suspect]
     Dosage: CONSUMER USED ASPIRIN FOR OVER 10 YEARS
     Route: 048

REACTIONS (3)
  - BARRETT'S OESOPHAGUS [None]
  - GASTRIC ULCER [None]
  - GASTROOESOPHAGEAL REFLUX DISEASE [None]
